FAERS Safety Report 14744432 (Version 12)
Quarter: 2019Q1

REPORT INFORMATION
  Report Type: Report from Study
  Country: FR (occurrence: FR)
  Receive Date: 20180411
  Receipt Date: 20190305
  Transmission Date: 20190417
  Serious: Yes (Other)
  Sender: FDA-Public Use
  Company Number: FR-ROCHE-1988048

PATIENT
  Age: 80 Year
  Sex: Female
  Weight: 42 kg

DRUGS (2)
  1. RITUXIMAB. [Suspect]
     Active Substance: RITUXIMAB
     Indication: MANTLE CELL LYMPHOMA
     Dosage: LAST ADMINISTRATION BEFORE SAE: 06/JUL/2017?DOSE AS PER PROTOCOL: EVERY 8 WEEKS FOR 24 MONTHS
     Route: 058
     Dates: start: 20160526, end: 20170706
  2. LENALIDOMIDE [Suspect]
     Active Substance: LENALIDOMIDE
     Indication: MANTLE CELL LYMPHOMA
     Dosage: LAST DOSE RECEIVED ON 29/DEC/2016?DOSE AS PER PROTOCOL: 15 MG 3 WEEKS EVERY 4 WEEKS FOR 24 MONTHS
     Route: 065
     Dates: start: 20160527

REACTIONS (4)
  - Malignant melanoma [Not Recovered/Not Resolved]
  - Basal cell carcinoma [Recovered/Resolved]
  - Bowen^s disease [Recovered/Resolved]
  - Basal cell carcinoma [Recovered/Resolved]

NARRATIVE: CASE EVENT DATE: 20170127
